FAERS Safety Report 9745529 (Version 1)
Quarter: 2013Q4

REPORT INFORMATION
  Report Type: Spontaneous
  Country: US (occurrence: US)
  Receive Date: 20131211
  Receipt Date: 20131211
  Transmission Date: 20140711
  Serious: No
  Sender: FDA-Public Use
  Company Number: US-BIOGENIDEC-2013BI093057

PATIENT
  Sex: 0

DRUGS (14)
  1. TECFIDERA [Suspect]
     Indication: MULTIPLE SCLEROSIS
     Route: 048
     Dates: start: 20130829
  2. NECON 1/35 TAB [Concomitant]
  3. GABAPENTIN [Concomitant]
  4. SULFAMETH/TRIAMETHOPRIM [Concomitant]
  5. MUPIROCIN 2 % OINT [Concomitant]
  6. SERTRALINE [Concomitant]
  7. EXTAVIA [Concomitant]
  8. BETASERON [Concomitant]
  9. TYLENOL [Concomitant]
  10. PROAIR HFA [Concomitant]
  11. LO-SEASONIQUE TAB [Concomitant]
  12. OXYBUTININ [Concomitant]
  13. LEXAPRO [Concomitant]
  14. CIPROFLOXACIN [Concomitant]

REACTIONS (4)
  - Paraesthesia [Unknown]
  - Dry skin [Unknown]
  - Flushing [Unknown]
  - Nausea [Unknown]
